FAERS Safety Report 18188998 (Version 1)
Quarter: 2020Q3

REPORT INFORMATION
  Report Type: Spontaneous
  Country: FR (occurrence: FR)
  Receive Date: 20200824
  Receipt Date: 20200824
  Transmission Date: 20201103
  Serious: Yes (Other)
  Sender: FDA-Public Use
  Company Number: FR-ROCHE-2663905

PATIENT
  Age: 33 Year
  Sex: Male

DRUGS (7)
  1. TRAMADOL CLORHIDRATO [Suspect]
     Active Substance: TRAMADOL HYDROCHLORIDE
     Indication: DRUG ABUSE
     Route: 048
  2. MDMA [Suspect]
     Active Substance: MIDOMAFETAMINE
     Indication: DRUG ABUSE
     Route: 065
     Dates: start: 2003
  3. ALPRAZOLAM. [Suspect]
     Active Substance: ALPRAZOLAM
     Indication: PRODUCT USED FOR UNKNOWN INDICATION
     Route: 048
  4. OXAZEPAM. [Suspect]
     Active Substance: OXAZEPAM
     Indication: DRUG ABUSE
     Route: 048
  5. CANNABIS [Suspect]
     Active Substance: CANNABIS SATIVA SUBSP. INDICA TOP
     Indication: DRUG ABUSE
     Route: 055
     Dates: start: 2002
  6. COCAINE [Suspect]
     Active Substance: COCAINE
     Indication: DRUG ABUSE
     Route: 065
     Dates: start: 2004
  7. DIAZEPAM. [Suspect]
     Active Substance: DIAZEPAM
     Indication: DRUG ABUSE
     Route: 048

REACTIONS (3)
  - Drug abuse [Unknown]
  - Amnestic disorder [Recovered/Resolved]
  - Loss of consciousness [Recovered/Resolved]
